FAERS Safety Report 21222011 (Version 4)
Quarter: 2022Q3

REPORT INFORMATION
  Report Type: Spontaneous
  Country: AU (occurrence: AU)
  Receive Date: 20220817
  Receipt Date: 20220906
  Transmission Date: 20221026
  Serious: Yes (Other)
  Sender: FDA-Public Use
  Company Number: AU-NOVARTISPH-NVSC2022AU182418

PATIENT
  Age: 41 Year
  Sex: Female

DRUGS (10)
  1. MYCOPHENOLATE MOFETIL [Suspect]
     Active Substance: MYCOPHENOLATE MOFETIL
     Indication: Acute graft versus host disease
     Dosage: UNK
     Route: 065
  2. MYCOPHENOLATE MOFETIL [Suspect]
     Active Substance: MYCOPHENOLATE MOFETIL
     Dosage: UNK (DAY +65 )
     Route: 065
     Dates: start: 202205
  3. MYCOPHENOLATE MOFETIL [Suspect]
     Active Substance: MYCOPHENOLATE MOFETIL
     Dosage: UNK (DAY +70)
     Route: 065
     Dates: end: 202205
  4. TACROLIMUS [Suspect]
     Active Substance: TACROLIMUS
     Indication: Acute graft versus host disease
     Dosage: UNK
     Route: 065
  5. TACROLIMUS [Suspect]
     Active Substance: TACROLIMUS
     Dosage: UNK (DAY +65)
     Route: 065
     Dates: start: 202205
  6. TACROLIMUS [Suspect]
     Active Substance: TACROLIMUS
     Dosage: UNK(DAY 103) (CEASED)
     Route: 065
     Dates: start: 202206
  7. TACROLIMUS [Suspect]
     Active Substance: TACROLIMUS
     Dosage: UNK (DAY 133)
     Route: 065
     Dates: start: 202207
  8. TACROLIMUS [Suspect]
     Active Substance: TACROLIMUS
     Dosage: UNK
     Route: 065
     Dates: start: 20220727
  9. METHYLPREDNISOLONE [Suspect]
     Active Substance: METHYLPREDNISOLONE
     Indication: Acute graft versus host disease
     Dosage: UNK(DAY +125)
     Route: 065
     Dates: start: 202207
  10. METHYLPREDNISOLONE [Suspect]
     Active Substance: METHYLPREDNISOLONE
     Dosage: UNK, (10 DAYS)
     Route: 065
     Dates: start: 20220718, end: 20220727

REACTIONS (14)
  - Graft versus host disease in gastrointestinal tract [Unknown]
  - Diarrhoea [Not Recovered/Not Resolved]
  - Mucosal inflammation [Unknown]
  - Ulcer [Unknown]
  - Colitis [Unknown]
  - Mucosal haemorrhage [Unknown]
  - Weight decreased [Unknown]
  - Cytomegalovirus viraemia [Unknown]
  - Cystitis haemorrhagic [Unknown]
  - Delayed graft function [Unknown]
  - Microangiopathy [Unknown]
  - Rash [Recovered/Resolved]
  - Product use in unapproved indication [Unknown]
  - Treatment failure [Unknown]

NARRATIVE: CASE EVENT DATE: 20220501
